FAERS Safety Report 6411987-X (Version None)
Quarter: 2009Q4

REPORT INFORMATION
  Report Type: 
  Country: None (occurrence: None)
  Receive Date: 20091023
  Receipt Date: 20091020
  Transmission Date: 20100525
  Serious: Yes (Death, Life-Threatening)
  Sender: FDA-Public Use
  Company Number: JP-JNJFOC-20090901989

PATIENT
  Sex: Female
  Weight: 39 kg

DRUGS (14)
  1. RISPERDAL CONSTA [Suspect]
     Route: 030
  2. RISPERDAL CONSTA [Suspect]
     Route: 030
  3. RISPERDAL CONSTA [Suspect]
     Indication: SCHIZOPHRENIA
     Route: 030
  4. RISPERDAL [Suspect]
     Indication: SCHIZOPHRENIA
     Route: 048
  5. RISPERDAL [Suspect]
     Indication: DRUG USE FOR UNKNOWN INDICATION
     Route: 048
  6. ABILIFY [Suspect]
     Route: 048
  7. ABILIFY [Suspect]
     Indication: DRUG USE FOR UNKNOWN INDICATION
     Route: 048
  8. ABILIT [Suspect]
     Indication: DRUG USE FOR UNKNOWN INDICATION
     Route: 048
  9. SERENACE [Suspect]
     Indication: DRUG USE FOR UNKNOWN INDICATION
     Route: 042
  10. AKINETON [Suspect]
     Indication: DRUG USE FOR UNKNOWN INDICATION
     Route: 042
  11. CERCINE [Suspect]
     Indication: DRUG USE FOR UNKNOWN INDICATION
     Route: 030
  12. ZOPICLONE [Suspect]
     Indication: DRUG USE FOR UNKNOWN INDICATION
     Dosage: 1 AMPULE EACH
     Route: 065
  13. NELBON [Concomitant]
     Indication: MAJOR DEPRESSION
     Route: 048
  14. FLUVOXAMINE MALEATE [Concomitant]
     Indication: MAJOR DEPRESSION
     Route: 065

REACTIONS (4)
  - COMA [None]
  - INAPPROPRIATE SCHEDULE OF DRUG ADMINISTRATION [None]
  - SCHIZOPHRENIA [None]
  - SUBARACHNOID HAEMORRHAGE [None]
